FAERS Safety Report 19038551 (Version 1)
Quarter: 2021Q1

REPORT INFORMATION
  Report Type: Spontaneous
  Country: JP (occurrence: JP)
  Receive Date: 20210322
  Receipt Date: 20210322
  Transmission Date: 20210420
  Serious: Yes (Other)
  Sender: FDA-Public Use
  Company Number: JP-MYLANLABS-2021M1015878

PATIENT
  Age: 64 Year
  Sex: Male

DRUGS (6)
  1. DOXORUBICIN [Suspect]
     Active Substance: DOXORUBICIN
     Indication: HIGH-GRADE B-CELL LYMPHOMA
     Dosage: 10 MILLIGRAM/SQ. METER, CYCLE, ON DAYS 2?5; AS A PART OF DA?EPOCH?R REGIMEN ADMINISTERED EVERY 21 DA
     Route: 065
  2. VINCRISTINE [Suspect]
     Active Substance: VINCRISTINE
     Indication: HIGH-GRADE B-CELL LYMPHOMA
     Dosage: 0.4 MILLIGRAM/SQ. METER, CYCLE, ON DAYS 2?5; AS A PART OF DA?EPOCH?R REGIMEN ADMINISTERED EVERY 21 D
     Route: 065
  3. ETOPOSIDE. [Suspect]
     Active Substance: ETOPOSIDE
     Indication: HIGH-GRADE B-CELL LYMPHOMA
     Dosage: AS A PART OF DA?EPOCH?R REGIMEN ADMINISTERED EVERY 21 DAYS
     Route: 065
  4. PREDNISOLONE. [Suspect]
     Active Substance: PREDNISOLONE
     Indication: HIGH-GRADE B-CELL LYMPHOMA
     Dosage: 60 MILLIGRAM/SQ. METER, CYCLE, ON DAYS 2?6; AS A PART OF DA?EPOCH?R REGIMEN ADMINISTERED EVERY 21 DA
     Route: 065
  5. CYCLOPHOSPHAMIDE. [Suspect]
     Active Substance: CYCLOPHOSPHAMIDE
     Indication: HIGH-GRADE B-CELL LYMPHOMA
     Dosage: 750 MILLIGRAM/SQ. METER, CYCLE, ON DAY 6; AS A PART OF DA?EPOCH?R REGIMEN ADMINISTERED EVERY 21 DAYS
     Route: 065
  6. RITUXIMAB. [Suspect]
     Active Substance: RITUXIMAB
     Indication: HIGH-GRADE B-CELL LYMPHOMA
     Dosage: 375 MILLIGRAM/SQ. METER, CYCLE, ON DAY 1; AS A PART OF DA?EPOCH?R REGIMEN ADMINISTERED EVERY 21 DAYS
     Route: 065

REACTIONS (1)
  - Neutropenia [Unknown]
